FAERS Safety Report 5927134-4 (Version None)
Quarter: 2008Q4

REPORT INFORMATION
  Report Type: 
  Country: None (occurrence: None)
  Receive Date: 20081022
  Receipt Date: 20081010
  Transmission Date: 20090506
  Serious: Yes (Other)
  Sender: FDA-Public Use
  Company Number: CA-PFIZER INC-2008066675

PATIENT
  Sex: Female
  Weight: 70.3 kg

DRUGS (2)
  1. CHAMPIX [Suspect]
     Indication: SMOKING CESSATION THERAPY
     Route: 048
     Dates: start: 20080101, end: 20080101
  2. ATIVAN [Concomitant]

REACTIONS (11)
  - ACTIVITIES OF DAILY LIVING IMPAIRED [None]
  - AFFECT LABILITY [None]
  - ANXIETY DISORDER [None]
  - CATATONIA [None]
  - DEPRESSION [None]
  - FEELING OF DESPAIR [None]
  - HYPERVENTILATION [None]
  - ILL-DEFINED DISORDER [None]
  - INSOMNIA [None]
  - PANIC ATTACK [None]
  - SUICIDAL BEHAVIOUR [None]
